FAERS Safety Report 12288706 (Version 1)
Quarter: 2016Q2

REPORT INFORMATION
  Report Type: Spontaneous
  Country: US (occurrence: US)
  Receive Date: 20160421
  Receipt Date: 20160421
  Transmission Date: 20160815
  Serious: Yes (Hospitalization, Other)
  Sender: FDA-Public Use
  Company Number: US-BAXTER-2016BAX019982

PATIENT
  Age: 76 Year
  Sex: Female
  Weight: 59.2 kg

DRUGS (21)
  1. CALCIUM [Concomitant]
     Active Substance: CALCIUM
     Indication: PRODUCT USED FOR UNKNOWN INDICATION
     Route: 065
     Dates: start: 20141006
  2. NEULASTA [Concomitant]
     Active Substance: PEGFILGRASTIM
     Indication: SUPPORTIVE CARE
     Dosage: FOR CYCLE 2
     Route: 065
     Dates: start: 20140918
  3. ACETAMINOPHEN. [Concomitant]
     Active Substance: ACETAMINOPHEN
     Indication: PRODUCT USED FOR UNKNOWN INDICATION
     Dosage: 1 (650 MG) TABLET DAILY AS REQUIRED (PRN)
     Route: 048
  4. CALCIUM CARBONATE. [Concomitant]
     Active Substance: CALCIUM CARBONATE
     Indication: PRODUCT USED FOR UNKNOWN INDICATION
     Dosage: 1 TABLET (OF 1000 MG)
     Route: 048
  5. CYCLOPHOSPHAMIDE FOR INJECTION, USP [Suspect]
     Active Substance: CYCLOPHOSPHAMIDE
     Dosage: CYCLE 3
     Route: 065
     Dates: start: 20141022, end: 20141022
  6. DOCETAXEL. [Suspect]
     Active Substance: DOCETAXEL
     Indication: BREAST CANCER METASTATIC
     Dosage: CYCLE 2
     Route: 065
     Dates: start: 20140918
  7. CHOLECALCIFEROL [Concomitant]
     Active Substance: CHOLECALCIFEROL
     Indication: PRODUCT USED FOR UNKNOWN INDICATION
     Dosage: 2 TABLET (OF 400 UNITS)
     Route: 048
  8. CYCLOPHOSPHAMIDE FOR INJECTION, USP [Suspect]
     Active Substance: CYCLOPHOSPHAMIDE
     Indication: BREAST CANCER METASTATIC
     Dosage: CYCLE 2
     Route: 065
     Dates: start: 20140918
  9. LETROZOLE. [Suspect]
     Active Substance: LETROZOLE
     Indication: BREAST CANCER METASTATIC
  10. COMPAZINE [Concomitant]
     Active Substance: PROCHLORPERAZINE MALEATE
     Indication: PRODUCT USED FOR UNKNOWN INDICATION
     Dosage: 1 (5 MG) TABLET FOUR TIMES A DAY PRN
     Route: 048
  11. FASLODEX [Concomitant]
     Active Substance: FULVESTRANT
     Indication: BREAST CANCER METASTATIC
     Dosage: D1, D15 AND D29
     Route: 030
     Dates: start: 20160108
  12. LETROZOLE. [Suspect]
     Active Substance: LETROZOLE
     Indication: METASTASES TO PERITONEUM
     Route: 048
     Dates: start: 20141122, end: 20160104
  13. FASLODEX [Concomitant]
     Active Substance: FULVESTRANT
     Indication: METASTASES TO PERITONEUM
     Route: 030
  14. VITAMIN D [Concomitant]
     Active Substance: CHOLECALCIFEROL
     Indication: PRODUCT USED FOR UNKNOWN INDICATION
     Route: 065
     Dates: start: 20141006
  15. POLYETHYLENE GLYCOL 3350. [Concomitant]
     Active Substance: POLYETHYLENE GLYCOL 3350
     Indication: PRODUCT USED FOR UNKNOWN INDICATION
     Dosage: 1 PACK DAILY
     Route: 048
  16. CYCLOPHOSPHAMIDE FOR INJECTION, USP [Suspect]
     Active Substance: CYCLOPHOSPHAMIDE
     Indication: METASTASES TO PERITONEUM
     Dosage: CYCLE 1
     Route: 065
     Dates: start: 20140828
  17. DOCETAXEL. [Suspect]
     Active Substance: DOCETAXEL
     Dosage: CYCLE 3
     Route: 065
     Dates: start: 20141022
  18. NEUPOGEN [Concomitant]
     Active Substance: FILGRASTIM
     Indication: SUPPORTIVE CARE
     Dosage: FOR CYCLE 1
     Route: 065
     Dates: start: 20140828
  19. IBRANCE [Concomitant]
     Active Substance: PALBOCICLIB
     Indication: BREAST CANCER METASTATIC
  20. DOCETAXEL. [Suspect]
     Active Substance: DOCETAXEL
     Indication: METASTASES TO PERITONEUM
     Dosage: CYCLE 1
     Route: 065
     Dates: start: 20140828
  21. IBRANCE [Concomitant]
     Active Substance: PALBOCICLIB
     Indication: METASTASES TO PERITONEUM
     Dosage: 1(125 MG) CAPSULE DAILY, D1-D21 OF 28 DAY CYCLE
     Route: 048
     Dates: start: 20160117

REACTIONS (17)
  - Osteoporosis [Unknown]
  - Clostridium difficile colitis [Unknown]
  - Neuropathy peripheral [Unknown]
  - Fatigue [Unknown]
  - Dizziness [Unknown]
  - Osteopenia [Unknown]
  - Peripheral swelling [Unknown]
  - Carotid artery occlusion [Unknown]
  - Weight decreased [Unknown]
  - Small intestinal obstruction [Recovered/Resolved]
  - Small intestinal obstruction [Unknown]
  - Febrile neutropenia [Unknown]
  - Back pain [Unknown]
  - Hypokalaemia [Unknown]
  - Hot flush [Unknown]
  - Thyroid mass [Unknown]
  - Urinary tract infection [Unknown]

NARRATIVE: CASE EVENT DATE: 20140930
